FAERS Safety Report 8841721 (Version 1)
Quarter: 2012Q4

REPORT INFORMATION
  Report Type: Spontaneous
  Country: US (occurrence: None)
  Receive Date: 20121011
  Receipt Date: 20121011
  Transmission Date: 20130627
  Serious: Yes (Other)
  Sender: FDA-Public Use
  Company Number: 1440166

PATIENT

DRUGS (2)
  1. CIPROFLOXACINE [Suspect]
     Indication: ANTIBIOTIC THERAPY
     Dosage: 400 mg, x1 ( UNKNOWN )
Intravenous (not otherwise specified)
     Route: 042
     Dates: start: 20120928
  2. SODIUM CHLORIDE [Concomitant]

REACTIONS (3)
  - Injection site urticaria [None]
  - Injection site pain [None]
  - Phlebitis [None]
